FAERS Safety Report 20553385 (Version 2)
Quarter: 2022Q3

REPORT INFORMATION
  Report Type: Spontaneous
  Country: US (occurrence: None)
  Receive Date: 20220304
  Receipt Date: 20220830
  Transmission Date: 20221027
  Serious: Yes (Other)
  Sender: FDA-Public Use
  Company Number: 2022A092069

PATIENT
  Age: 47 Year
  Sex: Female
  Weight: 79.4 kg

DRUGS (47)
  1. NEXIUM 24HR [Suspect]
     Active Substance: ESOMEPRAZOLE MAGNESIUM
     Indication: Gastrooesophageal reflux disease
     Route: 048
     Dates: start: 2003, end: 2022
  2. NEXIUM 24HR [Suspect]
     Active Substance: ESOMEPRAZOLE MAGNESIUM
     Indication: Gastrooesophageal reflux disease
     Route: 048
     Dates: start: 201403, end: 202112
  3. PRILOSEC [Suspect]
     Active Substance: OMEPRAZOLE MAGNESIUM
     Indication: Gastrooesophageal reflux disease
     Route: 065
     Dates: start: 2003, end: 2022
  4. PRILOSEC [Suspect]
     Active Substance: OMEPRAZOLE MAGNESIUM
     Indication: Gastrooesophageal reflux disease
     Route: 048
     Dates: start: 2015, end: 2020
  5. PRILOSEC OTC [Suspect]
     Active Substance: OMEPRAZOLE MAGNESIUM
     Indication: Gastrooesophageal reflux disease
     Route: 048
     Dates: start: 2003, end: 2022
  6. PRILOSEC OTC [Suspect]
     Active Substance: OMEPRAZOLE MAGNESIUM
     Indication: Gastrooesophageal reflux disease
     Route: 048
     Dates: start: 200306, end: 202202
  7. PREVACID [Suspect]
     Active Substance: LANSOPRAZOLE
     Indication: Gastrooesophageal reflux disease
     Route: 065
     Dates: start: 2015
  8. PREVACID 24 HR [Suspect]
     Active Substance: LANSOPRAZOLE
     Indication: Gastrooesophageal reflux disease
     Route: 065
     Dates: start: 200905, end: 202112
  9. PREVACID 24 HR [Suspect]
     Active Substance: LANSOPRAZOLE
     Indication: Gastrooesophageal reflux disease
     Route: 065
     Dates: start: 2021
  10. PROTONIX [Suspect]
     Active Substance: PANTOPRAZOLE SODIUM
     Indication: Gastrooesophageal reflux disease
     Route: 065
     Dates: start: 2003, end: 2022
  11. PROTONIX [Suspect]
     Active Substance: PANTOPRAZOLE SODIUM
     Indication: Gastrooesophageal reflux disease
     Route: 065
     Dates: start: 2021
  12. INDOMETHACIN [Concomitant]
     Active Substance: INDOMETHACIN
     Indication: Analgesic therapy
     Dates: start: 2017
  13. KETOROLAC [Concomitant]
     Active Substance: KETOROLAC TROMETHAMINE
     Indication: Analgesic therapy
     Dates: start: 2015
  14. ACYCLOVIR [Concomitant]
     Active Substance: ACYCLOVIR
     Indication: Infection
     Dates: start: 2011, end: 2012
  15. AMOXICILLIN [Concomitant]
     Active Substance: AMOXICILLIN
     Indication: Infection
     Dates: start: 2010, end: 2015
  16. ZITHROMAX [Concomitant]
     Active Substance: AZITHROMYCIN DIHYDRATE
     Indication: Infection
     Dates: start: 2019
  17. CEPHALEXIN [Concomitant]
     Active Substance: CEPHALEXIN
     Indication: Infection
     Dates: start: 2011
  18. KEFLEX [Concomitant]
     Active Substance: CEPHALEXIN
     Indication: Infection
     Dates: start: 2019
  19. DOXYCYCLINE [Concomitant]
     Active Substance: DOXYCYCLINE
     Indication: Infection
     Dates: start: 2010, end: 2021
  20. GENTAMICIN [Concomitant]
     Active Substance: GENTAMICIN
     Indication: Infection
     Dates: start: 2017
  21. PENICILLIN [Concomitant]
     Active Substance: PENICILLIN
     Indication: Infection
     Dates: start: 2011
  22. SULFAMETHOXAZOLE\TRIMETHOPRIM [Concomitant]
     Active Substance: SULFAMETHOXAZOLE\TRIMETHOPRIM
     Indication: Infection
     Dates: start: 2020
  23. BACTRIM DS [Concomitant]
     Active Substance: SULFAMETHOXAZOLE\TRIMETHOPRIM
     Indication: Infection
     Dates: start: 2020
  24. LISINOPRIL [Concomitant]
     Active Substance: LISINOPRIL
     Indication: Hypertension
     Dates: start: 2014, end: 2016
  25. LOSARTAN [Concomitant]
     Active Substance: LOSARTAN
     Indication: Hypertension
     Dates: start: 2020, end: 2021
  26. FUROSEMIDE [Concomitant]
     Active Substance: FUROSEMIDE
     Indication: Oedema
     Dates: start: 2011, end: 2020
  27. HYDROCHLOROTHIAZIDE [Concomitant]
     Active Substance: HYDROCHLOROTHIAZIDE
     Indication: Hypertension
     Dates: start: 2020, end: 2021
  28. PRAVASTATIN [Concomitant]
     Active Substance: PRAVASTATIN
     Indication: Blood cholesterol increased
     Dates: start: 2017, end: 2021
  29. AMITRIPTYLINE [Concomitant]
     Active Substance: AMITRIPTYLINE
     Indication: Antidepressant therapy
     Dates: start: 2009
  30. PEPCID [Concomitant]
     Active Substance: FAMOTIDINE
     Dates: start: 2021
  31. ZANTAC [Concomitant]
     Active Substance: RANITIDINE HYDROCHLORIDE
     Dates: start: 2002, end: 2003
  32. TUMS [Concomitant]
     Active Substance: CALCIUM CARBONATE
     Dates: start: 1992, end: 2002
  33. PEPTO-BISMOL [Concomitant]
     Active Substance: BISMUTH SUBSALICYLATE
     Dates: start: 1992, end: 2002
  34. ROLAIDS [Concomitant]
     Active Substance: CALCIUM CARBONATE\MAGNESIUM HYDROXIDE
     Dates: start: 1992, end: 2002
  35. MAALOX ANTACID [Concomitant]
     Active Substance: ALUMINUM HYDROXIDE\DIMETHICONE\MAGNESIUM HYDROXIDE
     Dates: start: 1992, end: 2002
  36. MYLANTA [Concomitant]
     Active Substance: ALUMINUM HYDROXIDE\DIMETHICONE\MAGNESIUM HYDROXIDE
     Dates: start: 1992, end: 2002
  37. CARVEDILOL [Concomitant]
     Active Substance: CARVEDILOL
  38. LORATADINE [Concomitant]
     Active Substance: LORATADINE
  39. METHYLPREDNISOLONE [Concomitant]
     Active Substance: METHYLPREDNISOLONE
  40. RELION VENTOLIN [Concomitant]
  41. CYCLOBENZAPRINE [Concomitant]
     Active Substance: CYCLOBENZAPRINE
  42. GENTAMICIN [Concomitant]
     Active Substance: GENTAMICIN
  43. PHENTERMINE [Concomitant]
     Active Substance: PHENTERMINE
  44. BONTRIL [Concomitant]
     Active Substance: PHENDIMETRAZINE TARTRATE
  45. SULF [Concomitant]
  46. METFORMIN [Concomitant]
     Active Substance: METFORMIN HYDROCHLORIDE
  47. HYDROCODONE [Concomitant]
     Active Substance: HYDROCODONE

REACTIONS (4)
  - Chronic kidney disease [Not Recovered/Not Resolved]
  - Acute kidney injury [Not Recovered/Not Resolved]
  - Renal failure [Unknown]
  - Gastrooesophageal reflux disease [Not Recovered/Not Resolved]

NARRATIVE: CASE EVENT DATE: 20210101
